FAERS Safety Report 6168275-9 (Version None)
Quarter: 2009Q2

REPORT INFORMATION
  Report Type: 
  Country: None (occurrence: None)
  Receive Date: 20090427
  Receipt Date: 20090415
  Transmission Date: 20091009
  Serious: Yes (Hospitalization)
  Sender: FDA-Public Use
  Company Number: JP-PFIZER INC-2009200211

PATIENT

DRUGS (1)
  1. VFEND [Suspect]
     Indication: ANTIFUNGAL PROPHYLAXIS
     Route: 048

REACTIONS (6)
  - DECREASED APPETITE [None]
  - DRUG DISPENSING ERROR [None]
  - DYSGEUSIA [None]
  - HYPONATRAEMIA [None]
  - MALAISE [None]
  - OVERDOSE [None]
